FAERS Safety Report 4541609-4 (Version None)
Quarter: 2004Q4

REPORT INFORMATION
  Report Type: 
  Country: None (occurrence: None)
  Receive Date: 20041230
  Receipt Date: 20041225
  Transmission Date: 20050328
  Serious: Yes (Hospitalization)
  Sender: FDA-Public Use
  Company Number: PHEH2004US13661

PATIENT
  Sex: Male

DRUGS (1)
  1. LOTREL [Suspect]

REACTIONS (2)
  - INTRACARDIAC THROMBUS [None]
  - THROMBOSIS [None]
